FAERS Safety Report 25393996 (Version 1)
Quarter: 2025Q2

REPORT INFORMATION
  Report Type: Spontaneous
  Country: US (occurrence: US)
  Receive Date: 20250604
  Receipt Date: 20250604
  Transmission Date: 20250716
  Serious: Yes (Other)
  Sender: AMGEN
  Company Number: US-AMGEN-USASP2025107316

PATIENT
  Age: 49 Year
  Sex: Female

DRUGS (4)
  1. REPATHA [Suspect]
     Active Substance: EVOLOCUMAB
     Indication: Product used for unknown indication
     Route: 058
  2. REPATHA [Suspect]
     Active Substance: EVOLOCUMAB
     Route: 058
  3. NITROGLYCERIN [Concomitant]
     Active Substance: NITROGLYCERIN
     Dosage: UNK, Q12H (2X A DAY)
  4. BRILINTA [Concomitant]
     Active Substance: TICAGRELOR

REACTIONS (7)
  - Myocardial infarction [Unknown]
  - Injection site pruritus [Unknown]
  - Drug dose omission by device [Unknown]
  - Injection site mass [Unknown]
  - Injection site bruising [Unknown]
  - Weight decreased [Unknown]
  - Device difficult to use [Unknown]

NARRATIVE: CASE EVENT DATE: 20170101
